FAERS Safety Report 10089235 (Version 2)
Quarter: 2014Q2

REPORT INFORMATION
  Report Type: Spontaneous
  Country: IN (occurrence: IN)
  Receive Date: 20140421
  Receipt Date: 20140421
  Transmission Date: 20141212
  Serious: Yes (Other)
  Sender: FDA-Public Use
  Company Number: IN-PFIZER INC-2014106912

PATIENT
  Age: 45 Year
  Sex: Male

DRUGS (1)
  1. LIGNOCAINE [Suspect]
     Indication: NERVE BLOCK
     Dosage: 0.8 ML OF 2%

REACTIONS (1)
  - Anaesthetic complication neurological [Recovered/Resolved]
